FAERS Safety Report 5887273-3 (Version None)
Quarter: 2008Q3

REPORT INFORMATION
  Report Type: 
  Country: None (occurrence: None)
  Receive Date: 20080915
  Receipt Date: 20080902
  Transmission Date: 20090109
  Serious: Yes (Hospitalization)
  Sender: FDA-Public Use
  Company Number: 238333J08USA

PATIENT
  Age: 61 Year
  Sex: Female
  Weight: 111.5849 kg

DRUGS (5)
  1. REBIF [Suspect]
     Indication: MULTIPLE SCLEROSIS
     Dosage: 44 MCG, 3 IN 1 WEEKS, SUBCUTANEOUS
     Route: 058
     Dates: start: 20080303
  2. METFORMIN HCL [Concomitant]
  3. AVANDIA [Concomitant]
  4. GLIPIZIDE [Concomitant]
  5. HYDROCODONE(HYDROCODONE) [Concomitant]

REACTIONS (5)
  - CELLULITIS [None]
  - GOUT [None]
  - PAIN IN EXTREMITY [None]
  - PYREXIA [None]
  - WEIGHT BEARING DIFFICULTY [None]
